APPROVED DRUG PRODUCT: EDROPHONIUM CHLORIDE
Active Ingredient: EDROPHONIUM CHLORIDE
Strength: 10MG/ML
Dosage Form/Route: INJECTABLE;INJECTION
Application: A040131 | Product #001
Applicant: HOSPIRA WORLDWIDE, INC
Approved: Feb 24, 1998 | RLD: No | RS: No | Type: DISCN